FAERS Safety Report 9655966 (Version 1)
Quarter: 2013Q4

REPORT INFORMATION
  Report Type: Spontaneous
  Country: US (occurrence: None)
  Receive Date: 20131029
  Receipt Date: 20131029
  Transmission Date: 20140711
  Serious: Yes (Disabling)
  Sender: FDA-Public Use
  Company Number: None

PATIENT
  Age: 42 Year
  Sex: Female
  Weight: 56.7 kg

DRUGS (1)
  1. LEVOFLOXACIN [Suspect]
     Dosage: 1 PILL ONCE DAILY TAKEN BY MOUTH
     Route: 048

REACTIONS (10)
  - Arthralgia [None]
  - Arthralgia [None]
  - Tendon pain [None]
  - Abasia [None]
  - Dizziness [None]
  - Asthenopia [None]
  - Gastrointestinal pain [None]
  - Feeling jittery [None]
  - Memory impairment [None]
  - Feeling abnormal [None]
